FAERS Safety Report 4789932-2 (Version None)
Quarter: 2005Q4

REPORT INFORMATION
  Report Type: 
  Country: None (occurrence: None)
  Receive Date: 20051006
  Receipt Date: 20050310
  Transmission Date: 20060501
  Serious: Yes (Hospitalization)
  Sender: FDA-Public Use
  Company Number: 2005CG00529

PATIENT
  Age: 14091 Day
  Sex: Male
  Weight: 105 kg

DRUGS (4)
  1. CRESTOR [Suspect]
     Indication: DYSLIPIDAEMIA
     Route: 048
     Dates: start: 20040601, end: 20050309
  2. NEXIUM [Concomitant]
     Indication: OESOPHAGITIS
     Route: 048
     Dates: start: 20040201
  3. COAPROVEL [Concomitant]
     Indication: HYPERTENSION
     Dosage: 300 + 12.5 MG QD
     Route: 048
     Dates: start: 20040101
  4. ISOPTIN [Concomitant]
     Indication: HYPERTENSION
     Route: 048
     Dates: start: 20041101

REACTIONS (3)
  - ABDOMINAL PAIN UPPER [None]
  - BLOOD CREATINE PHOSPHOKINASE INCREASED [None]
  - MYALGIA [None]
